FAERS Safety Report 4982860-9 (Version None)
Quarter: 2006Q2

REPORT INFORMATION
  Report Type: 
  Country: None (occurrence: None)
  Receive Date: 20060420
  Receipt Date: 20060409
  Transmission Date: 20061013
  Serious: Yes (Other)
  Sender: FDA-Public Use
  Company Number: 2006048972

PATIENT
  Age: 42 Year
  Sex: Female

DRUGS (1)
  1. BENADRYL [Suspect]
     Indication: ACCIDENTAL EXPOSURE
     Dosage: ORAL
     Route: 048
     Dates: start: 20060408, end: 20060408

REACTIONS (2)
  - ACCIDENTAL EXPOSURE [None]
  - VOMITING [None]
